FAERS Safety Report 9640283 (Version 1)
Quarter: 2013Q4

REPORT INFORMATION
  Report Type: Report from Study
  Country: US (occurrence: US)
  Receive Date: 20131023
  Receipt Date: 20131023
  Transmission Date: 20140711
  Serious: Yes (Other)
  Sender: FDA-Public Use
  Company Number: US-ROCHE-1292792

PATIENT
  Age: 83 Year
  Sex: Female

DRUGS (3)
  1. AVASTIN [Suspect]
     Indication: OVARIAN CANCER
     Route: 065
  2. CARBOPLATIN [Concomitant]
  3. GEMZAR [Concomitant]

REACTIONS (3)
  - Ascites [Unknown]
  - Appetite disorder [Unknown]
  - Nausea [Unknown]
